FAERS Safety Report 5928124-8 (Version None)
Quarter: 2008Q4

REPORT INFORMATION
  Report Type: 
  Country: None (occurrence: None)
  Receive Date: 20081022
  Receipt Date: 20081022
  Transmission Date: 20090506
  Serious: Yes (Hospitalization, Other)
  Sender: FDA-Public Use
  Company Number: None

PATIENT
  Age: 21 Year
  Sex: Female
  Weight: 43.0917 kg

DRUGS (14)
  1. CYCLOPHOSPHAMIDE [Suspect]
     Indication: NEPHROTIC SYNDROME
     Dosage: 750MG ONCE IV
     Route: 042
     Dates: start: 20080301, end: 20080301
  2. CYCLOPHOSPHAMIDE [Suspect]
     Indication: LUPUS NEPHRITIS
     Dosage: 450MG ONCE IV
     Route: 042
     Dates: start: 20080402, end: 20080402
  3. LABETALOL HCL [Concomitant]
  4. HYDROCODONE/APAP [Concomitant]
  5. FOSRENOL [Concomitant]
  6. PHOSLO [Concomitant]
  7. CLONIDINE [Concomitant]
  8. CAPTOPRIL [Concomitant]
  9. LISINOPRIL [Concomitant]
  10. ESOMEPRAZOLE MAGNESIUM [Concomitant]
  11. METHYLPREDNISOLONE SODIUM SUCCINATE [Concomitant]
  12. ERYTHROPOETIN [Concomitant]
  13. LUPRON DEPOT [Concomitant]
  14. NISOLDIPINE [Concomitant]

REACTIONS (4)
  - CONVULSION [None]
  - DIALYSIS [None]
  - HYPERTENSION [None]
  - REVERSIBLE POSTERIOR LEUKOENCEPHALOPATHY SYNDROME [None]
